FAERS Safety Report 5599736-9 (Version None)
Quarter: 2008Q1

REPORT INFORMATION
  Report Type: 
  Country: None (occurrence: None)
  Receive Date: 20080117
  Receipt Date: 20080107
  Transmission Date: 20080703
  Serious: Yes (Hospitalization)
  Sender: FDA-Public Use
  Company Number: 430001N08FRA

PATIENT
  Age: 45 Year
  Sex: Female

DRUGS (1)
  1. NOVANTRONE [Suspect]
     Indication: MULTIPLE SCLEROSIS
     Dates: start: 20001201, end: 20041201

REACTIONS (2)
  - ACUTE PULMONARY OEDEMA [None]
  - CARDIOMYOPATHY [None]
